FAERS Safety Report 12765713 (Version 3)
Quarter: 2016Q4

REPORT INFORMATION
  Report Type: Spontaneous
  Country: US (occurrence: US)
  Receive Date: 20160921
  Receipt Date: 20161212
  Transmission Date: 20170207
  Serious: Yes (Hospitalization, Other)
  Sender: FDA-Public Use
  Company Number: US-JNJFOC-20160822568

PATIENT
  Age: 43 Year

DRUGS (1)
  1. XARELTO [Suspect]
     Active Substance: RIVAROXABAN
     Indication: METHYLENETETRAHYDROFOLATE REDUCTASE DEFICIENCY
     Route: 048
     Dates: start: 20141101, end: 20150415

REACTIONS (3)
  - Gastrointestinal haemorrhage [Unknown]
  - Off label use [Unknown]
  - Product use issue [Unknown]

NARRATIVE: CASE EVENT DATE: 20141101
